FAERS Safety Report 9971585 (Version 2)
Quarter: 2014Q1

REPORT INFORMATION
  Report Type: Report from Study
  Country: US (occurrence: US)
  Receive Date: 20140306
  Receipt Date: 20140306
  Transmission Date: 20141002
  Serious: No
  Sender: FDA-Public Use
  Company Number: US-ABBVIE-13P-163-1133887-00

PATIENT
  Age: 61 Year
  Sex: Female

DRUGS (8)
  1. HUMIRA [Suspect]
     Indication: COLITIS ULCERATIVE
     Dosage: LOADING DOSE
     Dates: start: 20130801, end: 20130801
  2. HUMIRA [Suspect]
     Dosage: LOADING DOSE
  3. PREDNISONE [Concomitant]
     Indication: COLITIS ULCERATIVE
     Dosage: 20 MG DAILY TAPPERED DOWN 5 MG PER WEEK
  4. DELZICOL [Concomitant]
     Indication: COLITIS ULCERATIVE
  5. CANDESARTAN [Concomitant]
     Indication: HYPERTENSION
     Dosage: 4 MG DAILY
  6. NORTRIPTYLINE [Concomitant]
     Indication: MIGRAINE
  7. DICYCLOMINE [Concomitant]
     Indication: COLITIS ULCERATIVE
     Dosage: 1 IN AM AND 1 IN PM
  8. RANITIDINE [Concomitant]
     Indication: GASTROOESOPHAGEAL REFLUX DISEASE
     Dosage: 2 IN AM AND 2 IN PM

REACTIONS (3)
  - Incorrect dose administered [Recovered/Resolved]
  - Injection site pain [Recovered/Resolved]
  - Injection site bruising [Not Recovered/Not Resolved]
